FAERS Safety Report 12569234 (Version 2)
Quarter: 2016Q3

REPORT INFORMATION
  Report Type: Report from Study
  Country: KR (occurrence: KR)
  Receive Date: 20160719
  Receipt Date: 20160728
  Transmission Date: 20161109
  Serious: Yes (Hospitalization)
  Sender: FDA-Public Use
  Company Number: PHHO2016KR001982

PATIENT
  Age: 11 Year
  Sex: Male
  Weight: 30.15 kg

DRUGS (1)
  1. AMN107 [Suspect]
     Active Substance: NILOTINIB
     Indication: CHRONIC MYELOID LEUKAEMIA
     Dosage: 250 MG, BID
     Route: 048
     Dates: start: 20140919

REACTIONS (1)
  - Growth hormone deficiency [Not Recovered/Not Resolved]

NARRATIVE: CASE EVENT DATE: 20151229
